FAERS Safety Report 16594560 (Version 1)
Quarter: 2019Q3

REPORT INFORMATION
  Report Type: Other
  Country: US (occurrence: US)
  Receive Date: 20190718
  Receipt Date: 20190718
  Transmission Date: 20191004
  Serious: No
  Sender: FDA-Public Use
  Company Number: US-SWEDISH ORPHAN BIOVITRUM-2019US0414

PATIENT
  Sex: Female

DRUGS (6)
  1. CARBITROL [Concomitant]
  2. KINERET [Suspect]
     Active Substance: ANAKINRA
     Indication: PERICARDITIS
     Route: 058
     Dates: start: 20181206
  3. MOTRIN [Concomitant]
     Active Substance: IBUPROFEN
  4. ASPIRIN. [Concomitant]
     Active Substance: ASPIRIN
  5. COLCHICINE. [Concomitant]
     Active Substance: COLCHICINE
  6. ATORVASTATIN [Concomitant]
     Active Substance: ATORVASTATIN

REACTIONS (1)
  - Urinary tract infection [Unknown]
